FAERS Safety Report 23224168 (Version 3)
Quarter: 2024Q1

REPORT INFORMATION
  Report Type: Report from Study
  Country: PT (occurrence: PT)
  Receive Date: 20231124
  Receipt Date: 20240220
  Transmission Date: 20240410
  Serious: Yes (Hospitalization)
  Sender: FDA-Public Use
  Company Number: PT-002147023-NVSC2023PT246563

PATIENT
  Age: 49 Year
  Sex: Female
  Weight: 68.7 kg

DRUGS (16)
  1. FULVESTRANT [Suspect]
     Active Substance: FULVESTRANT
     Indication: Breast cancer
     Dosage: 500 MG, QMO
     Route: 030
     Dates: start: 20230919
  2. ABSTRAL [Concomitant]
     Active Substance: FENTANYL CITRATE
     Indication: Pain
     Dosage: UNK
     Route: 065
     Dates: start: 20230927
  3. APIDRA [Concomitant]
     Active Substance: INSULIN GLULISINE
     Indication: Prophylaxis
     Dosage: UNK
     Route: 065
     Dates: start: 20231031
  4. CEFUROXIME [Concomitant]
     Active Substance: CEFUROXIME
     Indication: Mucosal inflammation
     Dosage: UNK
     Route: 065
     Dates: start: 20230926
  5. LANTUS [Concomitant]
     Active Substance: INSULIN GLARGINE
     Indication: Prophylaxis
     Dosage: UNK
     Route: 065
     Dates: start: 20231031
  6. MIRTAZAPINE [Concomitant]
     Active Substance: MIRTAZAPINE
     Indication: Prophylaxis
     Dosage: UNK
     Route: 065
     Dates: start: 20230911
  7. MYCOSTATIN [Concomitant]
     Active Substance: NYSTATIN
     Indication: Mucosal inflammation
     Dosage: UNK
     Route: 065
     Dates: start: 20230926
  8. OMEPRAZOLE [Concomitant]
     Active Substance: OMEPRAZOLE
     Indication: Gastritis prophylaxis
     Dosage: UNK
     Route: 065
     Dates: start: 20231003
  9. ONDANSETRON [Concomitant]
     Active Substance: ONDANSETRON
     Indication: Nausea
     Dosage: UNK
     Route: 065
     Dates: start: 20230927
  10. ONDANSETRON [Concomitant]
     Active Substance: ONDANSETRON
     Indication: Vomiting
  11. ACETAMINOPHEN [Concomitant]
     Active Substance: ACETAMINOPHEN
     Indication: Pain
     Dosage: UNK
     Route: 065
     Dates: start: 201306
  12. RIVOTRIL [Concomitant]
     Active Substance: CLONAZEPAM
     Indication: Anxiety
     Dosage: UNK
     Route: 065
     Dates: start: 202203
  13. MORPHINE [Concomitant]
     Active Substance: MORPHINE
     Indication: Pain
     Dosage: UNK
     Route: 065
     Dates: start: 20230706
  14. BUPRENORPHINE [Concomitant]
     Active Substance: BUPRENORPHINE
     Indication: Pain
     Dosage: UNK
     Route: 065
     Dates: start: 20230927
  15. TRAZODONE HYDROCHLORIDE [Concomitant]
     Active Substance: TRAZODONE HYDROCHLORIDE
     Indication: Anxiety
     Dosage: UNK
     Route: 065
     Dates: start: 201402
  16. ZOLEDRONIC ACID [Concomitant]
     Active Substance: ZOLEDRONIC ACID
     Indication: Breast cancer
     Dosage: UNK
     Route: 065
     Dates: start: 202101

REACTIONS (1)
  - Cerebrovascular accident [Recovered/Resolved]

NARRATIVE: CASE EVENT DATE: 20231117
